FAERS Safety Report 5874657-2 (Version None)
Quarter: 2008Q3

REPORT INFORMATION
  Report Type: 
  Country: None (occurrence: None)
  Receive Date: 20080904
  Receipt Date: 20080819
  Transmission Date: 20090109
  Serious: Yes (Life-Threatening, Hospitalization)
  Sender: FDA-Public Use
  Company Number: DSA_32334_2008

PATIENT
  Sex: Male

DRUGS (9)
  1. LORAZEPAM [Suspect]
     Dosage: (UP TO 12.5 MG DAILY ORAL)
     Route: 048
     Dates: start: 20080613
  2. CLOZAPINE [Suspect]
     Indication: SCHIZOPHRENIA, PARANOID TYPE
     Dosage: (75 MG QD ORAL) (100 MG QD ORAL), (300 MG QD ORAL), (400 MG QD ORAL), (500 MG QD ORAL)
     Route: 048
     Dates: start: 20080619, end: 20080620
  3. CLOZAPINE [Suspect]
     Indication: SCHIZOPHRENIA, PARANOID TYPE
     Dosage: (75 MG QD ORAL) (100 MG QD ORAL), (300 MG QD ORAL), (400 MG QD ORAL), (500 MG QD ORAL)
     Route: 048
     Dates: start: 20080621, end: 20080623
  4. CLOZAPINE [Suspect]
     Indication: SCHIZOPHRENIA, PARANOID TYPE
     Dosage: (75 MG QD ORAL) (100 MG QD ORAL), (300 MG QD ORAL), (400 MG QD ORAL), (500 MG QD ORAL)
     Route: 048
     Dates: start: 20080624, end: 20080703
  5. CLOZAPINE [Suspect]
     Indication: SCHIZOPHRENIA, PARANOID TYPE
     Dosage: (75 MG QD ORAL) (100 MG QD ORAL), (300 MG QD ORAL), (400 MG QD ORAL), (500 MG QD ORAL)
     Route: 048
     Dates: start: 20000101
  6. CLOZAPINE [Suspect]
     Indication: SCHIZOPHRENIA, PARANOID TYPE
     Dosage: (75 MG QD ORAL) (100 MG QD ORAL), (300 MG QD ORAL), (400 MG QD ORAL), (500 MG QD ORAL)
     Route: 048
     Dates: start: 20080704
  7. AKINETON [Suspect]
     Indication: DRUG USE FOR UNKNOWN INDICATION
     Dosage: (2 MG BID ORAL), (10 MG QD ORAL)
     Route: 048
     Dates: start: 20080623, end: 20080703
  8. AKINETON [Suspect]
     Indication: DRUG USE FOR UNKNOWN INDICATION
     Dosage: (2 MG BID ORAL), (10 MG QD ORAL)
     Route: 048
     Dates: start: 20080704
  9. CLOPIXOL /00876701/ [Concomitant]

REACTIONS (10)
  - ABNORMAL BEHAVIOUR [None]
  - ANTICHOLINERGIC SYNDROME [None]
  - ANTIPSYCHOTIC DRUG LEVEL ABOVE THERAPEUTIC [None]
  - COGNITIVE DISORDER [None]
  - CONDITION AGGRAVATED [None]
  - DISTURBANCE IN ATTENTION [None]
  - DRUG INTERACTION [None]
  - HALLUCINATION, VISUAL [None]
  - MEMORY IMPAIRMENT [None]
  - PARANOIA [None]
